FAERS Safety Report 16080176 (Version 4)
Quarter: 2019Q2

REPORT INFORMATION
  Report Type: Report from Study
  Country: TW (occurrence: TW)
  Receive Date: 20190315
  Receipt Date: 20190607
  Transmission Date: 20190711
  Serious: Yes (Hospitalization, Other)
  Sender: FDA-Public Use
  Company Number: PHHY2018TW100915

PATIENT
  Age: 60 Year
  Sex: Female
  Weight: 58.3 kg

DRUGS (30)
  1. ACETAMINOPHEN. [Concomitant]
     Active Substance: ACETAMINOPHEN
     Indication: PROPHYLAXIS
     Dosage: 500 OT, UNK
     Route: 048
     Dates: start: 20181017, end: 20181031
  2. ALDACTONE A [Concomitant]
     Active Substance: SPIRONOLACTONE
     Indication: HYPERTENSION
     Dosage: 1 DF, UNK
     Route: 048
     Dates: start: 20190527
  3. HYZAAR [Concomitant]
     Active Substance: HYDROCHLOROTHIAZIDE\LOSARTAN POTASSIUM
     Indication: HYPERTENSION
     Dosage: 1 OT, UNK
     Route: 048
     Dates: start: 20181016
  4. DOXAZOSIN [Concomitant]
     Active Substance: DOXAZOSIN\DOXAZOSIN MESYLATE
     Dosage: 4 UNK, UNK
     Route: 048
     Dates: start: 20181115, end: 20181122
  5. ACETAMINOPHEN. [Concomitant]
     Active Substance: ACETAMINOPHEN
     Dosage: 500 OT, UNK
     Route: 048
     Dates: start: 20181115
  6. KENTAMIN [Concomitant]
     Indication: MALNUTRITION
     Dosage: 1 OT, UNK
     Route: 048
     Dates: start: 20181224, end: 20190101
  7. VOTRIENT [Suspect]
     Active Substance: PAZOPANIB HYDROCHLORIDE
     Indication: RENAL CELL CARCINOMA
     Dosage: 800 OT, UNK
     Route: 048
     Dates: start: 20180813, end: 20180828
  8. VOTRIENT [Suspect]
     Active Substance: PAZOPANIB HYDROCHLORIDE
     Dosage: 800 OT, UNK
     Route: 048
     Dates: start: 20181225
  9. DEXCHLORPHENIRAMINE [Concomitant]
     Active Substance: DEXCHLORPHENIRAMINE
     Indication: BRONCHITIS
     Dosage: 2 OT, UNK
     Route: 048
     Dates: start: 20181016, end: 20181019
  10. TRACETON [Concomitant]
     Indication: METASTASES TO LUNG
     Dosage: 1 DF, 37.5MG/325MG
     Route: 048
     Dates: start: 20181016, end: 20181019
  11. TAZOCIN [Concomitant]
     Active Substance: PIPERACILLIN SODIUM\TAZOBACTAM SODIUM
     Indication: PNEUMONIA
     Dosage: 2250 OT, UNK
     Route: 042
     Dates: start: 20181210, end: 20181217
  12. NEOMYCIN. [Concomitant]
     Active Substance: NEOMYCIN
     Indication: PROPHYLAXIS
     Dosage: 1 DF, UNK
     Route: 061
     Dates: start: 20181224
  13. VOTRIENT [Suspect]
     Active Substance: PAZOPANIB HYDROCHLORIDE
     Dosage: 800 OT, UNK
     Route: 048
     Dates: start: 20180912, end: 20181212
  14. ACETYLCYSTEINE. [Concomitant]
     Active Substance: ACETYLCYSTEINE
     Indication: BRONCHITIS
     Dosage: 66.7 UNK, UNK
     Dates: start: 20181017
  15. DOPHILIN [Concomitant]
     Indication: HYPERTENSION
     Dosage: 2 OT, UNK
     Route: 048
     Dates: start: 20180920, end: 20181018
  16. CEFAZOLIN [Concomitant]
     Active Substance: CEFAZOLIN
     Indication: PNEUMONIA
     Dosage: 1000 OT, UNK
     Route: 042
     Dates: start: 20181219, end: 20181219
  17. SPIRONOLACTONE. [Concomitant]
     Active Substance: SPIRONOLACTONE
     Indication: HYPERTENSION
     Dosage: 25 MG, UNK
     Route: 048
     Dates: start: 20190401
  18. DEXTROMETHORPHAN [Concomitant]
     Active Substance: DEXTROMETHORPHAN
     Indication: BRONCHITIS
     Dosage: 30 OT, UNK
     Route: 048
     Dates: start: 20181016, end: 20181019
  19. ACETYLCYSTEINE. [Concomitant]
     Active Substance: ACETYLCYSTEINE
     Indication: METASTASES TO LUNG
     Dosage: 66.7 OT, UNK
     Route: 048
     Dates: start: 20180920, end: 20181018
  20. AMLODIPINE [Concomitant]
     Active Substance: AMLODIPINE BESYLATE
     Dosage: 5 OT, UNK
     Route: 048
     Dates: start: 20181115
  21. CEFUROXIME. [Concomitant]
     Active Substance: CEFUROXIME
     Indication: PROPHYLAXIS
     Dosage: 500 OT, UNK
     Route: 048
     Dates: start: 20181016, end: 20181019
  22. BIOMYCIN [Concomitant]
     Indication: INFECTION PROPHYLAXIS
     Dosage: 1 OT, UNK
     Route: 061
     Dates: start: 20181221
  23. DOXAZOSIN [Concomitant]
     Active Substance: DOXAZOSIN\DOXAZOSIN MESYLATE
     Indication: HYPERTENSION
     Dosage: 4 OT, UNK
     Route: 048
     Dates: start: 20181017, end: 20181114
  24. AMLODIPINE [Concomitant]
     Active Substance: AMLODIPINE BESYLATE
     Indication: HYPERTENSION
     Dosage: 5 OT, UNK
     Route: 048
     Dates: start: 20180907, end: 20180924
  25. MEDICON [Concomitant]
     Active Substance: DEXTROMETHORPHAN HYDROBROMIDE
     Indication: COUGH
     Dosage: 1 DF, UNK
     Route: 065
     Dates: start: 20180829
  26. ULTRACET [Concomitant]
     Active Substance: ACETAMINOPHEN\TRAMADOL HYDROCHLORIDE
     Indication: METASTASES TO LUNG
     Dosage: 1 OT, UNK
     Route: 048
     Dates: start: 20180906, end: 20180924
  27. CHLORPHENAMINE [Concomitant]
     Active Substance: CHLORPHENIRAMINE MALEATE
     Indication: OVERDOSE
     Dosage: UNK
     Route: 042
     Dates: start: 20180906, end: 20180907
  28. MEGEST [Concomitant]
     Indication: METASTASES TO LUNG
     Dosage: 40 MG/ML, 10 OT, UNK
     Route: 048
     Dates: start: 20180920
  29. LASIX [Concomitant]
     Active Substance: FUROSEMIDE
     Indication: HYPERTENSION
     Dosage: 40 MG, UNK
     Route: 048
     Dates: start: 20190227
  30. LORAZEPAM. [Concomitant]
     Active Substance: LORAZEPAM
     Indication: PROPHYLAXIS
     Dosage: 1 OT, UNK
     Route: 048
     Dates: start: 20181016

REACTIONS (9)
  - Hyponatraemia [Recovered/Resolved]
  - Diarrhoea [Recovered/Resolved]
  - Pyrexia [Recovered/Resolved]
  - Hypertriglyceridaemia [Unknown]
  - Haemoptysis [Recovered/Resolved]
  - Enteritis [Recovered/Resolved]
  - Hypokalaemia [Recovered/Resolved]
  - Acute sinusitis [Recovered/Resolved]
  - Productive cough [Unknown]

NARRATIVE: CASE EVENT DATE: 20180828
